FAERS Safety Report 4294044-0 (Version None)
Quarter: 2004Q1

REPORT INFORMATION
  Report Type: 
  Country: None (occurrence: None)
  Receive Date: 20040210
  Receipt Date: 20021025
  Transmission Date: 20041129
  Serious: Yes (Death, Hospitalization)
  Sender: FDA-Public Use
  Company Number: 2002IC000296

PATIENT
  Age: 30 Year
  Sex: Male

DRUGS (11)
  1. LIBRIUM [Suspect]
     Dosage: ORAL
     Route: 048
  2. TYLENOL [Suspect]
     Dosage: ORAL
     Route: 048
  3. EXTRA STRENGTH TYLENOL [Suspect]
     Dosage: ORAL
     Route: 048
  4. EFFEXOR [Suspect]
     Dosage: ORAL
     Route: 048
  5. WELLBUTRIN SR [Suspect]
     Dosage: ORAL
     Route: 048
  6. AMBIEN [Suspect]
     Dosage: ORAL
     Route: 048
  7. SKELAXIN [Suspect]
     Dosage: ORAL
     Route: 048
  8. MIDOL [Suspect]
     Dosage: ORAL
     Route: 048
  9. PYRIDIUM [Suspect]
     Dosage: ORAL
     Route: 048
  10. ALEVE [Suspect]
     Dosage: ORAL
     Route: 048
  11. RELAFEN [Suspect]
     Dosage: ORAL
     Route: 048

REACTIONS (14)
  - BODY TEMPERATURE INCREASED [None]
  - COMPLETED SUICIDE [None]
  - CONVULSION [None]
  - DISSEMINATED INTRAVASCULAR COAGULATION [None]
  - DRUG INTERACTION [None]
  - HEPATIC FAILURE [None]
  - MULTIPLE DRUG OVERDOSE [None]
  - NYSTAGMUS [None]
  - POSTURING [None]
  - PUPIL FIXED [None]
  - RENAL FAILURE [None]
  - RHABDOMYOLYSIS [None]
  - SUICIDE ATTEMPT [None]
  - TACHYCARDIA [None]
